FAERS Safety Report 10402279 (Version 4)
Quarter: 2015Q1

REPORT INFORMATION
  Report Type: Report from Study
  Country: US (occurrence: US)
  Receive Date: 20140822
  Receipt Date: 20150210
  Transmission Date: 20150720
  Serious: Yes (Hospitalization, Other)
  Sender: FDA-Public Use
  Company Number: US-ACTELION-A-NJ2014-103810

PATIENT
  Age: 77 Year
  Sex: Female

DRUGS (9)
  1. TRACLEER [Suspect]
     Active Substance: BOSENTAN\BOSENTAN MONOHYDRATE
     Indication: PULMONARY HYPERTENSION
     Dosage: 125 MG, BID
     Route: 048
  2. FOLIC ACID. [Concomitant]
     Active Substance: FOLIC ACID
     Dosage: 1 MG, QD
  3. ALPRAZOLAM. [Concomitant]
     Active Substance: ALPRAZOLAM
     Dosage: 0.25 MG, PRN
  4. PROTONIX [Concomitant]
     Active Substance: PANTOPRAZOLE SODIUM
     Dosage: 40 MG, QD
  5. TRAZODONE [Concomitant]
     Active Substance: TRAZODONE HYDROCHLORIDE
     Dosage: 100 MG, QPM
  6. ADVIL [Concomitant]
     Active Substance: IBUPROFEN
     Dosage: 400 MG, PRN
  7. CELEXA [Concomitant]
     Active Substance: CITALOPRAM HYDROBROMIDE
     Dosage: 20 MG, QD
  8. HYDROCODONE [Concomitant]
     Active Substance: HYDROCODONE
     Dosage: 200 MG, BID
  9. BENADRYL [Concomitant]
     Active Substance: DIPHENHYDRAMINE HYDROCHLORIDE
     Dosage: 25 MG, PRN

REACTIONS (26)
  - Squamous cell carcinoma [Unknown]
  - Limb operation [Unknown]
  - Micrographic skin surgery [Unknown]
  - Fatigue [Unknown]
  - Anosmia [Unknown]
  - Hypoaesthesia oral [Unknown]
  - Carpal tunnel syndrome [Not Recovered/Not Resolved]
  - Sinusitis [Unknown]
  - Malaise [Recovering/Resolving]
  - Pain in extremity [Not Recovered/Not Resolved]
  - Rhinorrhoea [Unknown]
  - Fall [Recovered/Resolved]
  - Joint injury [Unknown]
  - Rash pruritic [Not Recovered/Not Resolved]
  - Hypoaesthesia [Not Recovered/Not Resolved]
  - Knee operation [Unknown]
  - Dyspnoea [Unknown]
  - Headache [Not Recovered/Not Resolved]
  - Hypoaesthesia [Unknown]
  - Nasal congestion [Unknown]
  - Basal cell carcinoma [Not Recovered/Not Resolved]
  - Facial pain [Not Recovered/Not Resolved]
  - Sinusitis [Unknown]
  - Drug hypersensitivity [Not Recovered/Not Resolved]
  - Cough [Unknown]
  - Respiratory tract infection [Unknown]

NARRATIVE: CASE EVENT DATE: 2012
